FAERS Safety Report 5943541-8 (Version None)
Quarter: 2008Q4

REPORT INFORMATION
  Report Type: 
  Country: None (occurrence: None)
  Receive Date: 20081106
  Receipt Date: 20081029
  Transmission Date: 20090506
  Serious: Yes (Hospitalization)
  Sender: FDA-Public Use
  Company Number: FR-BAXTER-2008BH011596

PATIENT
  Age: 7 Year
  Sex: Male

DRUGS (7)
  1. METHOTREXATE GENERIC [Suspect]
     Indication: BONE SARCOMA
     Dosage: DOSE UNIT:GRAMS PER METERS SQUARED
     Route: 042
     Dates: start: 20070701, end: 20080301
  2. ENDOXAN BAXTER [Suspect]
     Indication: BONE SARCOMA
     Dosage: DOSE UNIT:GRAMS PER METERS SQUARED
     Route: 042
     Dates: start: 20070701, end: 20080301
  3. VEPESID [Suspect]
     Indication: BONE SARCOMA
     Route: 042
     Dates: start: 20070701, end: 20080301
  4. ZOPHREN [Suspect]
     Indication: PREMEDICATION
     Dosage: DOSE UNIT:UNKNOWN
     Route: 042
     Dates: start: 20070701, end: 20080301
  5. BACTRIM [Suspect]
     Indication: DRUG USE FOR UNKNOWN INDICATION
     Dosage: DOSE UNIT:UNKNOWN
     Route: 065
     Dates: start: 20071101
  6. SOLU-MEDROL [Suspect]
     Indication: DRUG USE FOR UNKNOWN INDICATION
     Dosage: DOSE UNIT:UNKNOWN
     Route: 065
     Dates: start: 20071101
  7. FOLINIC ACID [Concomitant]
     Indication: PREMEDICATION
     Dates: start: 20070701, end: 20080301

REACTIONS (4)
  - DIPLOPIA [None]
  - EPILEPTIC AURA [None]
  - LEUKODYSTROPHY [None]
  - PUPILS UNEQUAL [None]
